FAERS Safety Report 8582500-6 (Version None)
Quarter: 2012Q3

REPORT INFORMATION
  Report Type: 
  Country: None (occurrence: None)
  Receive Date: 20120809
  Receipt Date: 20120802
  Transmission Date: 20120928
  Serious: Yes (Hospitalization)
  Sender: FDA-Public Use
  Company Number: IT-JNJFOC-20120800682

PATIENT
  Sex: Female

DRUGS (1)
  1. RISPERDAL [Suspect]
     Indication: SELF INJURIOUS BEHAVIOUR
     Route: 048
     Dates: start: 20120701, end: 20120701

REACTIONS (5)
  - HYPOTENSION [None]
  - TACHYCARDIA [None]
  - SELF INJURIOUS BEHAVIOUR [None]
  - SOPOR [None]
  - OVERDOSE [None]
